FAERS Safety Report 8511067-3 (Version None)
Quarter: 2012Q3

REPORT INFORMATION
  Report Type: 
  Country: None (occurrence: None)
  Receive Date: 20120716
  Receipt Date: 20120709
  Transmission Date: 20120928
  Serious: Yes (Death, Hospitalization, Other)
  Sender: FDA-Public Use
  Company Number: US-009507513-2011SP046637

PATIENT

DRUGS (2)
  1. VITAMINS (UNSPECIFIED) [Concomitant]
     Indication: NUTRITIONAL SUPPORT
     Dosage: UNK UNK, QD
  2. NUVARING [Suspect]
     Indication: CONTRACEPTION
     Dosage: UNK
     Dates: start: 20090101, end: 20091001

REACTIONS (9)
  - MASTITIS [None]
  - DEPRESSION [None]
  - FEAR [None]
  - ANXIETY [None]
  - VAGINAL HAEMORRHAGE [None]
  - DYSPAREUNIA [None]
  - CERVICAL DYSPLASIA [None]
  - DEEP VEIN THROMBOSIS [None]
  - PULMONARY EMBOLISM [None]
